FAERS Safety Report 23024949 (Version 1)
Quarter: 2023Q4

REPORT INFORMATION
  Report Type: Spontaneous
  Country: US (occurrence: None)
  Receive Date: 20231004
  Receipt Date: 20231004
  Transmission Date: 20240109
  Serious: Yes (Death, Other)
  Sender: FDA-Public Use
  Company Number: US-ENDO-CASE-0030458

PATIENT
  Sex: Female

DRUGS (27)
  1. NUBAIN [Suspect]
     Active Substance: NALBUPHINE HYDROCHLORIDE
  2. ACETAMINOPHEN\OXYCODONE HYDROCHLORIDE [Suspect]
     Active Substance: ACETAMINOPHEN\OXYCODONE HYDROCHLORIDE
  3. BUPRENORPHINE HYDROCHLORIDE [Suspect]
     Active Substance: BUPRENORPHINE HYDROCHLORIDE
  4. ENDODAN [Suspect]
     Active Substance: ASPIRIN\OXYCODONE HYDROCHLORIDE
  5. ACETAMINOPHEN\HYDROCODONE BITARTRATE [Suspect]
     Active Substance: ACETAMINOPHEN\HYDROCODONE BITARTRATE
  6. TRAMADOL HYDROCHLORIDE [Suspect]
     Active Substance: TRAMADOL HYDROCHLORIDE
  7. OPANA ER [Suspect]
     Active Substance: OXYMORPHONE HYDROCHLORIDE
  8. PERCOCET [Suspect]
     Active Substance: ACETAMINOPHEN\OXYCODONE HYDROCHLORIDE
  9. ENDOCET [Suspect]
     Active Substance: ACETAMINOPHEN\OXYCODONE HYDROCHLORIDE
  10. PROMETHAZINE HYDROCHLORIDE AND CODEINE PHOSPHATE [Suspect]
     Active Substance: CODEINE PHOSPHATE\PROMETHAZINE HYDROCHLORIDE
  11. GUAIFENESIN\HYDROCODONE BITARTRATE [Suspect]
     Active Substance: GUAIFENESIN\HYDROCODONE BITARTRATE
  12. OPANA [Suspect]
     Active Substance: OXYMORPHONE HYDROCHLORIDE
  13. ACETAMINOPHEN AND CODEINE [Suspect]
     Active Substance: ACETAMINOPHEN\CODEINE PHOSPHATE
  14. CHERATUSSIN AC [Suspect]
     Active Substance: CODEINE PHOSPHATE\GUAIFENESIN
  15. HYDROCODONE BITARTRATE\IBUPROFEN [Suspect]
     Active Substance: HYDROCODONE BITARTRATE\IBUPROFEN
  16. MEPERIDINE HYDROCHLORIDE [Suspect]
     Active Substance: MEPERIDINE HYDROCHLORIDE
  17. FENTANYL CITRATE [Suspect]
     Active Substance: FENTANYL CITRATE
  18. PHENYLHISTINE DH [Suspect]
     Active Substance: CHLORPHENIRAMINE MALEATE\CODEINE PHOSPHATE\PSEUDOEPHEDRINE HYDROCHLORIDE
  19. PROPOXYPHENE HYDROCHLORIDE [Suspect]
     Active Substance: PROPOXYPHENE HYDROCHLORIDE
  20. MORPHINE SULFATE [Suspect]
     Active Substance: MORPHINE SULFATE
  21. CODEINE PHOSPHATE\GUAIFENESIN [Suspect]
     Active Substance: CODEINE PHOSPHATE\GUAIFENESIN
  22. HYDROCODONE POLISTIREX AND CHLORPHENIRAMINE POLISTIREX [Suspect]
     Active Substance: CHLORPHENIRAMINE MALEATE\HYDROCODONE BITARTRATE
  23. BUTALBITAL, ACETAMINOPHEN AND CAFFEINE WITH CODEINE PHOSPHATE [Suspect]
     Active Substance: ACETAMINOPHEN\BUTALBITAL\CAFFEINE\CODEINE PHOSPHATE
  24. ACETAMINOPHEN\HYDROCODONE BITARTRATE [Suspect]
     Active Substance: ACETAMINOPHEN\HYDROCODONE BITARTRATE
  25. DEPODUR [Suspect]
     Active Substance: MORPHINE SULFATE
  26. BELBUCA [Suspect]
     Active Substance: BUPRENORPHINE HYDROCHLORIDE
  27. OXYMORPHONE HYDROCHLORIDE [Suspect]
     Active Substance: OXYMORPHONE HYDROCHLORIDE

REACTIONS (3)
  - Death [Fatal]
  - Overdose [Unknown]
  - Dependence [Unknown]
